FAERS Safety Report 11089205 (Version 2)
Quarter: 2015Q3

REPORT INFORMATION
  Report Type: Spontaneous
  Country: US (occurrence: US)
  Receive Date: 20150505
  Receipt Date: 20150706
  Transmission Date: 20151125
  Serious: No
  Sender: FDA-Public Use
  Company Number: US-ASTRAZENECA-2015SE39579

PATIENT
  Age: 79 Year
  Sex: Female
  Weight: 77.1 kg

DRUGS (5)
  1. JANUVIA [Concomitant]
     Active Substance: SITAGLIPTIN PHOSPHATE
  2. ONGLYZA [Suspect]
     Active Substance: SAXAGLIPTIN HYDROCHLORIDE
     Indication: TYPE 2 DIABETES MELLITUS
     Dosage: 5 MG 90 COUNT BOTTLE
     Route: 048
     Dates: start: 20150615
  3. ONGLYZA [Suspect]
     Active Substance: SAXAGLIPTIN HYDROCHLORIDE
     Indication: TYPE 2 DIABETES MELLITUS
     Route: 048
     Dates: start: 20150421, end: 20150422
  4. CHOLESTEROL MEDICINES [Concomitant]
  5. TRIGLYCERIDES [Concomitant]

REACTIONS (6)
  - Oropharyngeal pain [Unknown]
  - Expired product administered [Unknown]
  - Glycosylated haemoglobin increased [Unknown]
  - Nervousness [Unknown]
  - Ear pain [Unknown]
  - Headache [Unknown]

NARRATIVE: CASE EVENT DATE: 20150421
